FAERS Safety Report 4743695-5 (Version None)
Quarter: 2005Q3

REPORT INFORMATION
  Report Type: 
  Country: None (occurrence: None)
  Receive Date: 20050812
  Receipt Date: 20050627
  Transmission Date: 20060218
  Serious: Yes (Other)
  Sender: FDA-Public Use
  Company Number: PHEH2005US07239

PATIENT
  Age: 67 Year
  Sex: Female
  Weight: 77 kg

DRUGS (4)
  1. PAMIDRONATE DISODIUM [Suspect]
     Indication: BREAST CANCER
     Dosage: 90 MG, QMO
     Route: 042
     Dates: start: 20020502, end: 20050603
  2. FASLODEX [Concomitant]
  3. DECADRON [Concomitant]
     Indication: BREAST CANCER
     Dosage: 20 MG, QW3
     Route: 042
     Dates: start: 20020726, end: 20020927
  4. DECADRON [Concomitant]
     Indication: NAUSEA
     Dosage: 4 MG, TID
     Route: 048
     Dates: start: 20020813, end: 20020815

REACTIONS (5)
  - ASEPTIC NECROSIS BONE [None]
  - PAIN IN JAW [None]
  - PROCEDURAL PAIN [None]
  - TOOTH EXTRACTION [None]
  - TOOTHACHE [None]
